FAERS Safety Report 16139848 (Version 2)
Quarter: 2019Q4

REPORT INFORMATION
  Report Type: Spontaneous
  Country: US (occurrence: US)
  Receive Date: 20190331
  Receipt Date: 20191004
  Transmission Date: 20200122
  Serious: No
  Sender: FDA-Public Use
  Company Number: US-JNJFOC-20190312264

PATIENT
  Age: 38 Year
  Sex: Female
  Weight: 61.29 kg

DRUGS (1)
  1. STELARA [Suspect]
     Active Substance: USTEKINUMAB
     Indication: PSORIATIC ARTHROPATHY
     Route: 058
     Dates: start: 2017

REACTIONS (3)
  - Needle issue [Unknown]
  - Injury associated with device [Unknown]
  - Product dose omission [Unknown]

NARRATIVE: CASE EVENT DATE: 20190307
